FAERS Safety Report 8455691-5 (Version None)
Quarter: 2012Q2

REPORT INFORMATION
  Report Type: 
  Country: None (occurrence: None)
  Receive Date: 20120614
  Receipt Date: 20120529
  Transmission Date: 20120825
  Serious: Yes (Hospitalization, Other)
  Sender: FDA-Public Use
  Company Number: 217665

PATIENT
  Sex: Female

DRUGS (16)
  1. LEVOTHYROXINE SODIUM [Concomitant]
  2. FUROSEMIDE [Concomitant]
  3. IRON (IRON) [Concomitant]
  4. OXYBUTYNIN [Concomitant]
  5. LOVASTATIN [Concomitant]
  6. NEUROTONIN (GABAPENTIN) [Concomitant]
  7. DAIVOBET OINTMENT (DAIVOBET /01643401/) [Suspect]
     Indication: PSORIASIS
  8. TRAMADOL HCL [Concomitant]
  9. NITROSTAT [Concomitant]
  10. LORAZEPAM [Concomitant]
  11. ZOLPIDEM [Concomitant]
  12. PRILOSEC [Concomitant]
  13. NOVOLOG [Concomitant]
  14. DIGOXIN [Concomitant]
  15. SPIRONLACTONE (SPIRONOLACTONE) [Concomitant]
  16. LANTUS [Concomitant]

REACTIONS (7)
  - SPLENOMEGALY [None]
  - LIVER DISORDER [None]
  - EPISTAXIS [None]
  - RECTAL HAEMORRHAGE [None]
  - PLATELET COUNT DECREASED [None]
  - ECONOMIC PROBLEM [None]
  - HEPATIC CIRRHOSIS [None]
